FAERS Safety Report 25342905 (Version 8)
Quarter: 2025Q4

REPORT INFORMATION
  Report Type: Spontaneous
  Country: JP (occurrence: JP)
  Receive Date: 20250521
  Receipt Date: 20251002
  Transmission Date: 20260118
  Serious: Yes (Other)
  Sender: ABBVIE
  Company Number: JP-ABBVIE-6289321

PATIENT
  Age: 87 Year
  Sex: Female
  Weight: 49 kg

DRUGS (2)
  1. HUMIRA [Suspect]
     Active Substance: ADALIMUMAB
     Indication: Pyoderma gangrenosum
     Dosage: FORM STRENGTH : 40 MILLIGRAM, LAST ADMIN DOSE: 2025
     Route: 058
     Dates: start: 20250514
  2. HUMIRA [Suspect]
     Active Substance: ADALIMUMAB
     Dosage: FORM STRENGTH : 40 MILLIGRAM, DOSE FORM-SOLUTION FOR INJECTION IN PRE-FILLED SYRINGE
     Route: 058
     Dates: start: 20250122, end: 20250423

REACTIONS (4)
  - Pyoderma gangrenosum [Recovering/Resolving]
  - Staphylococcal infection [Recovering/Resolving]
  - Beta haemolytic streptococcal infection [Recovering/Resolving]
  - Bacterial infection [Recovering/Resolving]

NARRATIVE: CASE EVENT DATE: 20250326
